FAERS Safety Report 24460404 (Version 1)
Quarter: 2024Q4

REPORT INFORMATION
  Report Type: Spontaneous
  Country: CN (occurrence: CN)
  Receive Date: 20241018
  Receipt Date: 20241018
  Transmission Date: 20250115
  Serious: No
  Sender: ROCHE
  Company Number: CN-ROCHE-3558768

PATIENT
  Sex: Female

DRUGS (5)
  1. MABTHERA [Suspect]
     Active Substance: RITUXIMAB
     Indication: Neuromyelitis optica spectrum disorder
     Dosage: FIRST DOSE
     Route: 065
     Dates: start: 20231027
  2. MABTHERA [Suspect]
     Active Substance: RITUXIMAB
     Dosage: SECOND DOSE
     Route: 065
     Dates: start: 20240428
  3. MABTHERA [Suspect]
     Active Substance: RITUXIMAB
     Route: 065
     Dates: start: 20240429
  4. METHYLPREDNISOLONE SODIUM SUCCINATE [Concomitant]
     Active Substance: METHYLPREDNISOLONE SODIUM SUCCINATE
     Dates: start: 20230915
  5. CEFTAZIDIME [Concomitant]
     Active Substance: CEFTAZIDIME
     Dates: start: 20240424

REACTIONS (12)
  - Off label use [Unknown]
  - Body temperature decreased [Unknown]
  - Urinary incontinence [Unknown]
  - Haematochezia [Unknown]
  - Escherichia infection [Unknown]
  - Dizziness [Unknown]
  - Nasal obstruction [Unknown]
  - Body temperature increased [Unknown]
  - Anxiety [Unknown]
  - Malaise [Unknown]
  - Muscular weakness [Unknown]
  - Asthenia [Unknown]

NARRATIVE: CASE EVENT DATE: 20240426
